FAERS Safety Report 6286056-2 (Version None)
Quarter: 2009Q3

REPORT INFORMATION
  Report Type: 
  Country: None (occurrence: None)
  Receive Date: 20090728
  Receipt Date: 20090721
  Transmission Date: 20100115
  Serious: Yes (Hospitalization, Other)
  Sender: FDA-Public Use
  Company Number: US-AMGEN-KDL345735

PATIENT
  Sex: Male
  Weight: 82.6 kg

DRUGS (3)
  1. PROCRIT [Suspect]
     Indication: ANAEMIA
     Route: 058
     Dates: start: 20080902, end: 20090507
  2. INTERFERON [Concomitant]
     Dates: start: 20080822
  3. RIBAVIRIN [Concomitant]
     Dates: start: 20080822

REACTIONS (3)
  - ANAEMIA [None]
  - CORONARY ARTERY BYPASS [None]
  - THERAPEUTIC RESPONSE DECREASED [None]
